FAERS Safety Report 7728285-4 (Version None)
Quarter: 2011Q3

REPORT INFORMATION
  Report Type: 
  Country: None (occurrence: None)
  Receive Date: 20110905
  Receipt Date: 20110830
  Transmission Date: 20111222
  Serious: Yes (Other)
  Sender: FDA-Public Use
  Company Number: PHHY2011NL71600

PATIENT
  Sex: Male

DRUGS (7)
  1. MORPHINE [Concomitant]
  2. ZOMETA [Suspect]
     Dosage: 04MG/05ML ONCE PER 21 DAYS
     Dates: start: 20110718
  3. CASODEX [Concomitant]
     Dosage: UNK UKN, UNK
  4. ZOMETA [Suspect]
     Dosage: 04MG/05ML ONCE PER 21 DAYS
     Dates: start: 20110808
  5. ANTICOAGULANTS [Concomitant]
     Dosage: UNK UKN, UNK
  6. ZOMETA [Suspect]
     Indication: PROSTATE CANCER METASTATIC
     Dosage: 04MG/05ML ONCE PER 21 DAYS
     Dates: start: 20090915
  7. ZOMETA [Suspect]
     Dosage: 04MG/05ML AT 320ML/H
     Dates: start: 20110829

REACTIONS (3)
  - TERMINAL STATE [None]
  - ASTHENIA [None]
  - MUSCULAR WEAKNESS [None]
